FAERS Safety Report 7559960-2 (Version None)
Quarter: 2011Q2

REPORT INFORMATION
  Report Type: 
  Country: None (occurrence: None)
  Receive Date: 20110621
  Receipt Date: 20110609
  Transmission Date: 20111010
  Serious: Yes (Other)
  Sender: FDA-Public Use
  Company Number: PHHY2010JP08075

PATIENT
  Sex: Male

DRUGS (14)
  1. TASIGNA [Suspect]
     Indication: CHRONIC MYELOID LEUKAEMIA
     Dosage: 400 MG DAILY
     Route: 048
     Dates: start: 20091001, end: 20091118
  2. TASIGNA [Suspect]
     Dosage: 200 MG DAILY
     Route: 048
     Dates: start: 20091216, end: 20100119
  3. TASIGNA [Suspect]
     Dosage: 200 MG, QOD
     Route: 048
     Dates: start: 20100120, end: 20100202
  4. PROMAC [Concomitant]
     Dosage: 1 G, UNK
     Route: 048
  5. TANNALBIN [Concomitant]
     Dosage: 2 G, UNK
     Route: 048
     Dates: end: 20091028
  6. TASIGNA [Suspect]
     Dosage: 400 MG, QW2
     Route: 048
     Dates: start: 20100401, end: 20100720
  7. ALLOPURINOL [Concomitant]
     Dosage: 200 MG, UNK
     Route: 048
  8. AMOBAN [Concomitant]
     Dosage: 7.5 MG, UNK
     Route: 048
  9. TASIGNA [Suspect]
     Dosage: 600 MG, UNK
     Route: 048
     Dates: start: 20100721, end: 20100903
  10. TASIGNA [Suspect]
     Dosage: 600 MG, UNK
     Route: 048
     Dates: start: 20101009
  11. DEPAKENE [Concomitant]
     Dosage: 800 MG, UNK
     Route: 048
  12. TASIGNA [Suspect]
     Dosage: 200 MG, QW
     Route: 048
     Dates: start: 20100303, end: 20100331
  13. AMLODIPINE BESYLATE [Concomitant]
     Dosage: 2.5 MG, UNK
     Route: 048
  14. ITRACONAZOLE [Concomitant]
     Indication: PROPHYLAXIS
     Dosage: 100 MG DAILY
     Route: 048
     Dates: end: 20100107

REACTIONS (3)
  - THROMBOCYTOPENIA [None]
  - EPISTAXIS [None]
  - LIPASE INCREASED [None]
